FAERS Safety Report 16470599 (Version 2)
Quarter: 2019Q2

REPORT INFORMATION
  Report Type: Spontaneous
  Country: GB (occurrence: GB)
  Receive Date: 20190624
  Receipt Date: 20190628
  Transmission Date: 20190711
  Serious: Yes (Other)
  Sender: FDA-Public Use
  Company Number: GB-GLAXOSMITHKLINE-GB2019EME110719

PATIENT

DRUGS (1)
  1. ZINNAT [Suspect]
     Active Substance: CEFUROXIME
     Indication: PRODUCT USED FOR UNKNOWN INDICATION
     Dosage: UNK (500 MG)

REACTIONS (12)
  - Nausea [Unknown]
  - Speech disorder [Unknown]
  - Dysphemia [Unknown]
  - Ataxia [Unknown]
  - Asthenia [Unknown]
  - Seizure [Unknown]
  - Overdose [Unknown]
  - Vomiting [Unknown]
  - Resting tremor [Unknown]
  - Hyperreflexia [Unknown]
  - Tremor [Unknown]
  - Neurotoxicity [Unknown]
